FAERS Safety Report 7676337-X (Version None)
Quarter: 2011Q3

REPORT INFORMATION
  Report Type: 
  Country: None (occurrence: None)
  Receive Date: 20110811
  Receipt Date: 20110808
  Transmission Date: 20111222
  Serious: No
  Sender: FDA-Public Use
  Company Number: US-PFIZER INC-2011165656

PATIENT
  Age: 71 Year
  Sex: Female

DRUGS (1)
  1. XANAX [Suspect]
     Dosage: 1 MG, UNK
     Dates: start: 20110714

REACTIONS (2)
  - DYSARTHRIA [None]
  - ABNORMAL SLEEP-RELATED EVENT [None]
